FAERS Safety Report 16182375 (Version 1)
Quarter: 2019Q2

REPORT INFORMATION
  Report Type: Spontaneous
  Country: US (occurrence: US)
  Receive Date: 20190410
  Receipt Date: 20190410
  Transmission Date: 20190711
  Serious: Yes (Hospitalization)
  Sender: FDA-Public Use
  Company Number: PHHY2019US078761

PATIENT
  Age: 46 Year
  Sex: Male

DRUGS (4)
  1. PARACETAMOL [Suspect]
     Active Substance: ACETAMINOPHEN
     Indication: MUSCULOSKELETAL PAIN
     Route: 065
  2. GABAPENTIN. [Suspect]
     Active Substance: GABAPENTIN
     Indication: MUSCULOSKELETAL PAIN
     Dosage: 200 MG, BID
     Route: 065
  3. IBUPROFEN. [Suspect]
     Active Substance: IBUPROFEN
     Indication: MUSCULOSKELETAL PAIN
     Dosage: 600 MG, QID (4 TIMES DAILY)
     Route: 065
  4. GABAPENTIN. [Suspect]
     Active Substance: GABAPENTIN
     Dosage: 300 MG, BID
     Route: 065

REACTIONS (10)
  - Decreased appetite [Unknown]
  - Liver injury [Unknown]
  - Cognitive disorder [Unknown]
  - Delirium [Unknown]
  - Hypotension [Recovered/Resolved]
  - Hallucination [Unknown]
  - Acute kidney injury [Unknown]
  - Myoclonus [Unknown]
  - Malaise [Unknown]
  - Toxicity to various agents [Recovered/Resolved]
